FAERS Safety Report 6843312-4 (Version None)
Quarter: 2010Q3

REPORT INFORMATION
  Report Type: 
  Country: None (occurrence: None)
  Receive Date: 20100715
  Receipt Date: 20100707
  Transmission Date: 20110219
  Serious: No
  Sender: FDA-Public Use
  Company Number: 2008BI020317

PATIENT
  Sex: Female

DRUGS (1)
  1. TYSABRI [Suspect]
     Indication: MULTIPLE SCLEROSIS
     Route: 042
     Dates: start: 20080404, end: 20080507

REACTIONS (6)
  - ASTHENIA [None]
  - FATIGUE [None]
  - MULTIPLE SCLEROSIS [None]
  - MUSCLE FATIGUE [None]
  - PERONEAL NERVE PALSY [None]
  - PROCEDURAL COMPLICATION [None]
